FAERS Safety Report 12879554 (Version 1)
Quarter: 2016Q4

REPORT INFORMATION
  Report Type: Report from Study
  Country: DK (occurrence: DK)
  Receive Date: 20161025
  Receipt Date: 20161025
  Transmission Date: 20170207
  Serious: Yes (Other)
  Sender: FDA-Public Use
  Company Number: DK-ACCORD-045039

PATIENT
  Age: 74 Year
  Sex: Female

DRUGS (2)
  1. DULOXETINE. [Interacting]
     Active Substance: DULOXETINE
     Indication: DEPRESSION
     Route: 048
  2. TRAMADOL/TRAMADOL HYDROCHLORIDE [Suspect]
     Active Substance: TRAMADOL HYDROCHLORIDE
     Indication: PAIN
     Route: 048

REACTIONS (5)
  - Drug prescribing error [None]
  - Diarrhoea [Unknown]
  - Intercepted medication error [Unknown]
  - Psychomotor hyperactivity [Unknown]
  - Potentiating drug interaction [Unknown]
